FAERS Safety Report 6499222-8 (Version None)
Quarter: 2009Q4

REPORT INFORMATION
  Report Type: 
  Country: None (occurrence: None)
  Receive Date: 20091215
  Receipt Date: 20091203
  Transmission Date: 20100525
  Serious: Yes (Hospitalization, Other)
  Sender: FDA-Public Use
  Company Number: PHHY2009FR51078

PATIENT
  Age: 19 Year
  Sex: Male

DRUGS (3)
  1. RITALIN [Suspect]
     Dosage: 40 MG, QD
  2. HALDOL [Concomitant]
     Dosage: 14 TO 16 DROPS, BID
  3. RIVOTRIL [Concomitant]
     Dosage: 16 TO 18 DROPS, BID

REACTIONS (3)
  - CHEST PAIN [None]
  - MALAISE [None]
  - TACHYCARDIA PAROXYSMAL [None]
